FAERS Safety Report 11336221 (Version 1)
Quarter: 2015Q3

REPORT INFORMATION
  Report Type: Spontaneous
  Country: US (occurrence: None)
  Receive Date: 20150731
  Receipt Date: 20150731
  Transmission Date: 20151125
  Serious: No
  Sender: FDA-Public Use
  Company Number: None

PATIENT
  Age: 70 Year
  Sex: Male
  Weight: 86.8 kg

DRUGS (1)
  1. ACYCLOVIR. [Suspect]
     Active Substance: ACYCLOVIR
     Route: 042
     Dates: start: 20130506, end: 20130509

REACTIONS (3)
  - Mental status changes [None]
  - Renal impairment [None]
  - Tremor [None]

NARRATIVE: CASE EVENT DATE: 20130508
